FAERS Safety Report 17955511 (Version 1)
Quarter: 2020Q2

REPORT INFORMATION
  Report Type: Spontaneous
  Country: US (occurrence: US)
  Receive Date: 20200626
  Receipt Date: 20200626
  Transmission Date: 20200714
  Serious: Yes (Other)
  Sender: FDA-Public Use
  Company Number: None

PATIENT
  Age: 73 Year
  Sex: Female

DRUGS (7)
  1. ASPIRIN 81MG TAB [Concomitant]
  2. BISOPROLOL 10MG TAB [Concomitant]
  3. LORATADINE 10MG TAB [Concomitant]
  4. VITAMIN D TAB [Concomitant]
  5. REPATHA [Suspect]
     Active Substance: EVOLOCUMAB
     Indication: HYPERCHOLESTEROLAEMIA
     Dosage: ?          OTHER FREQUENCY:EVERY 2 WEEKS;?
     Route: 058
     Dates: start: 20200605, end: 20200626
  6. ISOSORBIDE MONO ER 30MG TAB [Concomitant]
  7. LOSARTAN 100MG TAB [Concomitant]
     Active Substance: LOSARTAN

REACTIONS (5)
  - Stoma site haemorrhage [None]
  - Myalgia [None]
  - Headache [None]
  - Pain [None]
  - Therapy interrupted [None]

NARRATIVE: CASE EVENT DATE: 20200605
